FAERS Safety Report 4928228-2 (Version None)
Quarter: 2006Q1

REPORT INFORMATION
  Report Type: 
  Country: None (occurrence: None)
  Receive Date: 20060223
  Receipt Date: 20060221
  Transmission Date: 20060701
  Serious: Yes (Other)
  Sender: FDA-Public Use
  Company Number: 2006ADE/DICLO-003

PATIENT
  Age: 30 Year
  Sex: Male

DRUGS (1)
  1. DICLOFENAC RATIOPHARM 50 TABLETTEN [Suspect]
     Dosage: 50MGX/AS NECESSARY ORAL
     Route: 048
     Dates: start: 20050101

REACTIONS (1)
  - ANGIONEUROTIC OEDEMA [None]
